FAERS Safety Report 10089923 (Version 2)
Quarter: 2014Q2

REPORT INFORMATION
  Report Type: Spontaneous
  Country: US (occurrence: US)
  Receive Date: 20140421
  Receipt Date: 20140619
  Transmission Date: 20141212
  Serious: Yes (Hospitalization)
  Sender: FDA-Public Use
  Company Number: US-GILEAD-2014-0100093

PATIENT
  Age: 49 Year
  Sex: Female

DRUGS (4)
  1. LETAIRIS [Suspect]
     Indication: PULMONARY ARTERIAL HYPERTENSION
     Dosage: 10 MG, UNK
     Route: 065
     Dates: start: 20130301
  2. ASA [Concomitant]
     Dosage: 81 MG, UNK
  3. PLAVIX [Concomitant]
     Dosage: 75 MG, UNK
  4. WARFARIN [Concomitant]
     Dosage: 2 MG, UNK

REACTIONS (4)
  - Syncope [Recovered/Resolved]
  - Vertigo [Unknown]
  - Dyspnoea [Not Recovered/Not Resolved]
  - Fluid retention [Not Recovered/Not Resolved]
